FAERS Safety Report 19381704 (Version 5)
Quarter: 2021Q3

REPORT INFORMATION
  Report Type: Report from Study
  Country: DE (occurrence: DE)
  Receive Date: 20210607
  Receipt Date: 20210901
  Transmission Date: 20211014
  Serious: Yes (Hospitalization)
  Sender: FDA-Public Use
  Company Number: DE-ROCHE-2815118

PATIENT
  Age: 29 Year
  Sex: Female
  Weight: 60 kg

DRUGS (27)
  1. CARBOPLATIN. [Suspect]
     Active Substance: CARBOPLATIN
     Indication: TRIPLE NEGATIVE BREAST CANCER
     Dosage: LAST DOSE OF CARBOPLATIN PRIOR TO SAE: 08/APR/2021 AND 06/MAY/2021
     Route: 042
     Dates: start: 20210330
  2. ZOFRAN [Concomitant]
     Active Substance: ONDANSETRON HYDROCHLORIDE
  3. PACLITAXEL. [Suspect]
     Active Substance: PACLITAXEL
     Dosage: LAST DOSE OF PACLITAXEL PRIOR TO SAE: 06/MAY/2021
     Route: 042
     Dates: start: 20210330
  4. APREPITANT. [Concomitant]
     Active Substance: APREPITANT
     Dates: start: 20210409, end: 20210411
  5. CIMETIDIN [Concomitant]
     Dates: start: 20210408
  6. STEROFUNDIN [Concomitant]
     Active Substance: CALCIUM CHLORIDE\MAGNESIUM CHLORIDE\POTASSIUM CHLORIDE\SODIUM ACETATE\SODIUM CHLORIDE
     Dates: start: 20210506, end: 20210509
  7. BLOOD TRANSFUSION [Concomitant]
     Active Substance: HUMAN RED BLOOD CELL
     Dates: start: 20210506, end: 20210506
  8. PARACETAMOL [Concomitant]
     Active Substance: ACETAMINOPHEN
  9. NEULASTA [Concomitant]
     Active Substance: PEGFILGRASTIM
     Dates: start: 20210410, end: 20210410
  10. CARBOPLATIN. [Suspect]
     Active Substance: CARBOPLATIN
     Dosage: LAST DOSE OF CARBOPLATIN PRIOR TO SAE: 06/MAY/2021
     Route: 042
     Dates: start: 20210330
  11. PERFALGAN [Concomitant]
     Active Substance: ACETAMINOPHEN
     Dates: start: 20210409, end: 20210410
  12. MONO EMBOLEX [Concomitant]
     Active Substance: CERTOPARIN SODIUM
     Dosage: 30.000 IE DOSE
     Dates: start: 20210409, end: 20210411
  13. SKID [Concomitant]
     Active Substance: MINOCYCLINE HYDROCHLORIDE
     Dates: start: 20210409, end: 20210411
  14. ALOXI [Concomitant]
     Active Substance: PALONOSETRON HYDROCHLORIDE
     Dosage: 1 AMP DOSE
     Dates: start: 20210408
  15. PERFALGAN [Concomitant]
     Active Substance: ACETAMINOPHEN
     Dates: start: 20210415
  16. ZOLADEX [Concomitant]
     Active Substance: GOSERELIN ACETATE
     Dates: start: 20210309
  17. NACL [Concomitant]
     Active Substance: SODIUM CHLORIDE
     Dates: start: 20210408
  18. CLINDAMYCIN. [Concomitant]
     Active Substance: CLINDAMYCIN
     Dates: start: 20210506, end: 20210509
  19. PACLITAXEL. [Suspect]
     Active Substance: PACLITAXEL
     Indication: TRIPLE NEGATIVE BREAST CANCER
     Dosage: LAST DOSE OF PACLITAXEL PRIOR TO SAE: 08/APR/2021 AND 06/MAY/2021
     Route: 042
     Dates: start: 20210330
  20. ZOFRAN [Concomitant]
     Active Substance: ONDANSETRON HYDROCHLORIDE
     Dates: start: 20210409, end: 20210410
  21. DEXAMETHASON [Concomitant]
     Active Substance: DEXAMETHASONE
     Dates: start: 20210408
  22. ATEZOLIZUMAB. [Suspect]
     Active Substance: ATEZOLIZUMAB
     Indication: TRIPLE NEGATIVE BREAST CANCER
     Dosage: LAST DOSE OF ATEZOLIZUMAB PRIOR TO SAE (SEVERE ADVERSE EVENT): 30/MAR/2021 AND 22/APR/2021
     Route: 041
     Dates: start: 20210318
  23. FENISTIL [Concomitant]
     Active Substance: DIMETHINDENE
     Dosage: 1 AMP DOSE
     Dates: start: 20210408
  24. EMEND [Concomitant]
     Active Substance: APREPITANT
     Dosage: 125/80/80 MG
     Dates: start: 20210408
  25. PFIZER?BIONTECH COVID?19 VACCINE [Suspect]
     Active Substance: TOZINAMERAN
     Indication: PRODUCT USED FOR UNKNOWN INDICATION
     Route: 065
     Dates: start: 20210401, end: 20210401
  26. PANTOPRAZOL [Concomitant]
     Active Substance: PANTOPRAZOLE SODIUM
     Dates: start: 20210415
  27. FERRO SANOL [Concomitant]
     Active Substance: FERROUS GLYCINE SULFATE
     Dosage: 15 DROPS
     Dates: start: 20210515

REACTIONS (3)
  - Pyrexia [Recovered/Resolved]
  - Hypersensitivity [Recovered/Resolved]
  - Hypersensitivity [Recovered/Resolved]

NARRATIVE: CASE EVENT DATE: 20210408
